FAERS Safety Report 22350583 (Version 2)
Quarter: 2023Q2

REPORT INFORMATION
  Report Type: Spontaneous
  Country: CN (occurrence: CN)
  Receive Date: 20230522
  Receipt Date: 20230602
  Transmission Date: 20230722
  Serious: Yes (Hospitalization, Other)
  Sender: FDA-Public Use
  Company Number: CN-INSUD PHARMA-2305CN03067

PATIENT

DRUGS (4)
  1. NUVESSA [Suspect]
     Active Substance: METRONIDAZOLE
     Indication: Uterine infection
     Dosage: 0.75 GRAMS, SUSTAINED RELEASE TABLETS, ONCE DAILY
     Route: 048
     Dates: start: 20191101, end: 201911
  2. IBUPROFEN [Suspect]
     Active Substance: IBUPROFEN
     Indication: Upper respiratory tract infection
     Dosage: 0.2 GRAMS, GRANULES
     Route: 048
     Dates: start: 20191102, end: 20191102
  3. IBUPROFEN [Suspect]
     Active Substance: IBUPROFEN
     Dosage: 0.2 GRAMS, GRANULES, INTERMITTENTLY, 4 TIMES
     Route: 048
     Dates: start: 20191104, end: 201911
  4. CEFUROXIME AXETIL [Concomitant]
     Active Substance: CEFUROXIME AXETIL
     Indication: Uterine infection
     Dosage: 0.25 GRAM TWICE DAILY
     Dates: start: 20191101

REACTIONS (8)
  - Drug-induced liver injury [Recovered/Resolved]
  - Abdominal pain upper [Recovered/Resolved]
  - Chromaturia [Recovered/Resolved]
  - Yellow skin [Recovered/Resolved]
  - Ocular icterus [Recovered/Resolved]
  - Abdominal tenderness [Recovered/Resolved]
  - Jaundice [Recovered/Resolved]
  - Mental disorder [Recovered/Resolved]

NARRATIVE: CASE EVENT DATE: 20191104
